FAERS Safety Report 8370610-8 (Version None)
Quarter: 2012Q2

REPORT INFORMATION
  Report Type: 
  Country: None (occurrence: None)
  Receive Date: 20120517
  Receipt Date: 20120511
  Transmission Date: 20120825
  Serious: Yes (Hospitalization)
  Sender: FDA-Public Use
  Company Number: DAV-AE-AMO-12-03

PATIENT
  Age: 58 Year
  Sex: Female

DRUGS (1)
  1. AMOXICILLIN [Suspect]
     Indication: DENTAL OPERATION
     Dosage: 12 GRAMS, ORAL
     Route: 048

REACTIONS (1)
  - MENINGITIS ASEPTIC [None]
